FAERS Safety Report 10957928 (Version 7)
Quarter: 2015Q4

REPORT INFORMATION
  Report Type: Spontaneous
  Country: JP (occurrence: JP)
  Receive Date: 20150326
  Receipt Date: 20151120
  Transmission Date: 20160304
  Serious: Yes (Hospitalization)
  Sender: FDA-Public Use
  Company Number: JP-ABBVIE-15K-087-1340377-00

PATIENT
  Age: 66 Year
  Sex: Male
  Weight: 64 kg

DRUGS (3)
  1. HUMIRA [Suspect]
     Active Substance: ADALIMUMAB
     Indication: PSORIATIC ARTHROPATHY
     Route: 058
     Dates: start: 20141217, end: 20141217
  2. CALCIPOTRIOL [Concomitant]
     Active Substance: CALCIPOTRIENE
     Indication: PSORIASIS
     Route: 061
     Dates: start: 20141120, end: 20150109
  3. HUMIRA [Suspect]
     Active Substance: ADALIMUMAB
     Indication: PSORIASIS
     Route: 058
     Dates: start: 20150109, end: 20150109

REACTIONS (7)
  - Interstitial lung disease [Recovering/Resolving]
  - Peroneal nerve palsy [Recovering/Resolving]
  - Headache [Unknown]
  - Autoimmune neuropathy [Unknown]
  - Multifocal motor neuropathy [Unknown]
  - Fall [Unknown]
  - Deep vein thrombosis [Recovering/Resolving]

NARRATIVE: CASE EVENT DATE: 20150119
